FAERS Safety Report 4964476-3 (Version None)
Quarter: 2006Q1

REPORT INFORMATION
  Report Type: 
  Country: None (occurrence: None)
  Receive Date: 20060331
  Receipt Date: 20060323
  Transmission Date: 20060701
  Serious: Yes (Life-Threatening)
  Sender: FDA-Public Use
  Company Number: FR200603005759

PATIENT
  Age: 23 Year
  Sex: Female
  Weight: 92 kg

DRUGS (1)
  1. XIGRIS [Suspect]
     Indication: SEPTIC SHOCK
     Dosage: 40 MG, DAILY (1/D), INTRAVENOUS
     Route: 042
     Dates: start: 20060114, end: 20060117

REACTIONS (1)
  - CEREBRAL HAEMORRHAGE [None]
